FAERS Safety Report 4608585-7 (Version None)
Quarter: 2005Q1

REPORT INFORMATION
  Report Type: 
  Country: None (occurrence: None)
  Receive Date: 20050315
  Receipt Date: 20050304
  Transmission Date: 20050727
  Serious: Yes (Other)
  Sender: FDA-Public Use
  Company Number: DE-JNJFOC-20050301489

PATIENT
  Sex: Female

DRUGS (7)
  1. DURAGESIC-100 [Suspect]
     Route: 062
  2. DURAGESIC-100 [Suspect]
     Indication: PAIN
     Route: 062
  3. MARCUMAR [Interacting]
     Route: 049
  4. MARCUMAR [Interacting]
     Route: 049
  5. IBUPROFEN [Concomitant]
     Route: 065
  6. SORTIS [Concomitant]
     Route: 065
  7. CORTISONE ACETATE [Concomitant]
     Route: 065

REACTIONS (4)
  - DRUG INTERACTION [None]
  - NAUSEA [None]
  - THROMBOSIS [None]
  - VERTIGO [None]
